FAERS Safety Report 22269278 (Version 1)
Quarter: 2023Q2

REPORT INFORMATION
  Report Type: Spontaneous
  Country: US (occurrence: US)
  Receive Date: 20230501
  Receipt Date: 20230501
  Transmission Date: 20230722
  Serious: No
  Sender: FDA-Public Use
  Company Number: US-Merck Healthcare KGaA-9399479

PATIENT
  Sex: Female

DRUGS (1)
  1. REBIF [Suspect]
     Active Substance: INTERFERON BETA-1A
     Indication: Relapsing-remitting multiple sclerosis

REACTIONS (4)
  - Injection site granuloma [Unknown]
  - Injection site pain [Not Recovered/Not Resolved]
  - Dysstasia [Unknown]
  - Sitting disability [Unknown]
